FAERS Safety Report 15637095 (Version 2)
Quarter: 2019Q3

REPORT INFORMATION
  Report Type: Report from Study
  Country: FR (occurrence: FR)
  Receive Date: 20181120
  Receipt Date: 20190719
  Transmission Date: 20191004
  Serious: Yes (Hospitalization, Other)
  Sender: FDA-Public Use
  Company Number: FR-BAYER-2018-033673

PATIENT
  Age: 49 Year
  Sex: Male
  Weight: 90 kg

DRUGS (5)
  1. BLINDED REGORAFENIB [Suspect]
     Active Substance: REGORAFENIB
     Indication: OSTEOSARCOMA METASTATIC
     Dosage: 160 MG, QD
     Dates: start: 20170713, end: 20180412
  2. DOLIPRANE [Concomitant]
     Active Substance: ACETAMINOPHEN
     Indication: PAIN
     Dosage: UNK
     Route: 048
     Dates: start: 2016
  3. REGORAFENIB. [Suspect]
     Active Substance: REGORAFENIB
     Indication: OSTEOSARCOMA METASTATIC
     Dosage: 160 MG, QD
     Route: 048
     Dates: start: 20180303, end: 20180921
  4. REGORAFENIB. [Suspect]
     Active Substance: REGORAFENIB
     Indication: OSTEOSARCOMA METASTATIC
     Dosage: UNK
     Dates: end: 20181021
  5. INNOHEP [Concomitant]
     Active Substance: TINZAPARIN SODIUM
     Dosage: 4500 U, QD
     Route: 058
     Dates: start: 20180215

REACTIONS (2)
  - Pulmonary mass [Recovered/Resolved]
  - Pulmonary embolism [Not Recovered/Not Resolved]

NARRATIVE: CASE EVENT DATE: 20180215
